FAERS Safety Report 9026421 (Version 2)
Quarter: 2013Q1

REPORT INFORMATION
  Report Type: Report from Study
  Country: JP (occurrence: JP)
  Receive Date: 20130123
  Receipt Date: 20130304
  Transmission Date: 20140127
  Serious: Yes (Other)
  Sender: FDA-Public Use
  Company Number: JP-JNJFOC-20120400125

PATIENT
  Age: 75 Year
  Sex: Female
  Weight: 46 kg

DRUGS (21)
  1. DUROTEP MT [Suspect]
     Indication: PAIN
     Route: 062
     Dates: start: 20120327, end: 20120423
  2. DUROTEP MT [Suspect]
     Indication: PAIN
     Route: 062
     Dates: start: 20111122, end: 20120327
  3. DUROTEP MT [Suspect]
     Indication: PAIN
     Route: 062
     Dates: start: 20120424, end: 20120904
  4. PREGABALIN [Suspect]
     Indication: PAIN
     Route: 048
     Dates: start: 20120522, end: 20120605
  5. PREGABALIN [Suspect]
     Indication: PAIN
     Route: 048
     Dates: start: 20111011, end: 20120522
  6. PREGABALIN [Suspect]
     Indication: PAIN
     Route: 048
     Dates: start: 20120105
  7. ACETAMINOPHEN [Concomitant]
     Indication: PAIN
     Route: 048
     Dates: start: 20110809, end: 20120521
  8. ACETAMINOPHEN [Concomitant]
     Indication: PAIN
     Route: 048
     Dates: start: 20120522
  9. RIBOFLAVIN [Concomitant]
     Indication: PAIN
     Route: 048
  10. PROCHLORPERAZINE MALEATE [Concomitant]
     Indication: PROPHYLAXIS
     Route: 048
     Dates: start: 20120327, end: 20120424
  11. PROCHLORPERAZINE MALEATE [Concomitant]
     Indication: PROPHYLAXIS
     Dosage: P.R.N
     Route: 048
     Dates: start: 20111122, end: 20111129
  12. PROCHLORPERAZINE MALEATE [Concomitant]
     Indication: PROPHYLAXIS
     Route: 048
     Dates: start: 20111129, end: 20120228
  13. PROCHLORPERAZINE MALEATE [Concomitant]
     Indication: PROPHYLAXIS
     Dosage: P.R.N
     Route: 048
     Dates: start: 20120424, end: 20120508
  14. SENNOSIDE [Concomitant]
     Indication: PRODUCT USED FOR UNKNOWN INDICATION
     Dosage: AS NECESSARY
     Route: 048
     Dates: start: 20111207, end: 20120424
  15. SENNOSIDE [Concomitant]
     Indication: PRODUCT USED FOR UNKNOWN INDICATION
     Route: 048
     Dates: start: 20111129, end: 20111206
  16. SENNOSIDE [Concomitant]
     Indication: PRODUCT USED FOR UNKNOWN INDICATION
     Route: 048
     Dates: start: 20120425
  17. SENNOSIDE [Concomitant]
     Indication: PRODUCT USED FOR UNKNOWN INDICATION
     Route: 048
     Dates: start: 20120425
  18. SENNOSIDE [Concomitant]
     Indication: PRODUCT USED FOR UNKNOWN INDICATION
     Route: 048
     Dates: start: 20111129, end: 20111206
  19. SENNOSIDE [Concomitant]
     Indication: PRODUCT USED FOR UNKNOWN INDICATION
     Route: 048
     Dates: start: 20111207, end: 20120424
  20. SODIUM PICOSULFATE [Concomitant]
     Indication: PRODUCT USED FOR UNKNOWN INDICATION
     Dosage: 3 DROPS/AS NECESSARY
     Route: 048
     Dates: start: 20111129
  21. NEUROTROPIN [Concomitant]
     Indication: PAIN
     Dosage: 3 DROPS/PRN
     Route: 048
     Dates: start: 20120626

REACTIONS (6)
  - Visual impairment [Recovering/Resolving]
  - Dysuria [Recovered/Resolved]
  - Constipation [Recovered/Resolved]
  - Somnolence [Recovering/Resolving]
  - Thirst [Recovering/Resolving]
  - Malaise [Unknown]
